FAERS Safety Report 11184106 (Version 1)
Quarter: 2015Q2

REPORT INFORMATION
  Report Type: Spontaneous
  Country: IT (occurrence: None)
  Receive Date: 20150610
  Receipt Date: 20150610
  Transmission Date: 20150821
  Serious: Yes (Other)
  Sender: FDA-Public Use
  Company Number: FK201502610

PATIENT
  Age: 64 Year
  Sex: Male

DRUGS (4)
  1. OXALIPLATIN (MANUFACTURER UNKNOWN) (OXALIPLATIN) (OXALIPLATIN) [Suspect]
     Active Substance: OXALIPLATIN
     Indication: LUNG NEOPLASM MALIGNANT
     Dates: start: 20150423, end: 20150425
  2. FLUOROURACIL (FLUOROURACIL) (FLUOROURACIL) [Suspect]
     Active Substance: FLUOROURACIL
     Indication: LUNG NEOPLASM MALIGNANT
     Dates: start: 20150423, end: 20150425
  3. FOLINIC ACID (FOLINIC ACID) (FOLINIC ACID) [Suspect]
     Active Substance: LEUCOVORIN
     Indication: LUNG NEOPLASM MALIGNANT
     Dates: start: 20150423, end: 20150425
  4. AVASTIN [Suspect]
     Active Substance: BEVACIZUMAB
     Indication: LUNG NEOPLASM MALIGNANT
     Dates: start: 20150423, end: 20150425

REACTIONS (3)
  - Haemorrhage [None]
  - Ulcer [None]
  - Proctitis [None]

NARRATIVE: CASE EVENT DATE: 20150430
